FAERS Safety Report 16073769 (Version 1)
Quarter: 2019Q1

REPORT INFORMATION
  Report Type: Spontaneous
  Country: US (occurrence: US)
  Receive Date: 20190314
  Receipt Date: 20190314
  Transmission Date: 20190418
  Serious: No
  Sender: FDA-Public Use
  Company Number: US-US WORLDMEDS, LLC-USW201902-000374

PATIENT

DRUGS (6)
  1. AVAPRO [Concomitant]
     Active Substance: IRBESARTAN
  2. ASPIRIN. [Concomitant]
     Active Substance: ASPIRIN
  3. LIDOCAINE. [Concomitant]
     Active Substance: LIDOCAINE
  4. LUCEMYRA [Suspect]
     Active Substance: LOFEXIDINE
     Indication: PRODUCT USED FOR UNKNOWN INDICATION
     Dates: start: 20190209, end: 20190211
  5. PLAVIX [Concomitant]
     Active Substance: CLOPIDOGREL BISULFATE
  6. LYRICA [Concomitant]
     Active Substance: PREGABALIN

REACTIONS (7)
  - Hypotension [Recovered/Resolved]
  - Dyspnoea [Unknown]
  - Mental impairment [Recovered/Resolved]
  - Loss of personal independence in daily activities [Recovered/Resolved]
  - Feeling abnormal [Recovered/Resolved]
  - Malaise [Recovered/Resolved]
  - Apnoea [Recovered/Resolved]
